FAERS Safety Report 8267733-0 (Version None)
Quarter: 2012Q2

REPORT INFORMATION
  Report Type: 
  Country: None (occurrence: None)
  Receive Date: 20120409
  Receipt Date: 20120402
  Transmission Date: 20120825
  Serious: Yes (Hospitalization)
  Sender: FDA-Public Use
  Company Number: FR-JNJFOC-20120401008

PATIENT
  Sex: Male

DRUGS (11)
  1. ZOMETA [Suspect]
     Indication: PRODUCT USED FOR UNKNOWN INDICATION
     Route: 042
     Dates: start: 20120131, end: 20120131
  2. CICLETANINE [Concomitant]
     Route: 065
  3. AMLODIPINE BESYLATE [Concomitant]
     Route: 065
  4. PROPRANOLOL [Concomitant]
     Route: 065
  5. FLECAINIDE ACETATE [Concomitant]
     Route: 065
  6. TRIVASTAL [Concomitant]
     Route: 065
  7. XANAX [Concomitant]
     Route: 065
  8. ZOFENIL [Concomitant]
     Route: 065
  9. ALFUZOSIN HCL [Concomitant]
     Route: 065
  10. DURAGESIC-100 [Suspect]
     Indication: BONE PAIN
     Route: 062
     Dates: start: 20120131, end: 20120131
  11. DURAGESIC-100 [Suspect]
     Route: 062

REACTIONS (3)
  - FALL [None]
  - MALAISE [None]
  - DIZZINESS [None]
